FAERS Safety Report 20025949 (Version 13)
Quarter: 2022Q3

REPORT INFORMATION
  Report Type: Spontaneous
  Country: CZ (occurrence: CZ)
  Receive Date: 20211102
  Receipt Date: 20220707
  Transmission Date: 20221027
  Serious: Yes (Hospitalization, Other)
  Sender: FDA-Public Use
  Company Number: CZ-NOVARTISPH-NVSC2021CZ247655

PATIENT
  Age: 77 Year
  Sex: Male

DRUGS (21)
  1. LEVETIRACETAM [Interacting]
     Active Substance: LEVETIRACETAM
     Indication: Epilepsy
     Dosage: 500 MG, BID (ONE IN THE MORNING, ONE IN THE EVENING)/1000 MILLIGRAM DAILY
     Route: 065
  2. GABAPENTIN [Interacting]
     Active Substance: GABAPENTIN
     Indication: Epilepsy
     Dosage: 100 MG, TID (ONE TABLET IN THE MORNING, ONE AT NOON, ONE IN THE EVENING)/300 MILLIGRAM DAILY
     Route: 065
  3. SOLIFENACIN [Interacting]
     Active Substance: SOLIFENACIN
     Indication: Dysuria
     Dosage: 10 MG, ONCE DAILY (1-0-0)
     Route: 065
     Dates: start: 201812
  4. SOLIFENACIN [Interacting]
     Active Substance: SOLIFENACIN
     Indication: Urinary retention
  5. SOLIFENACIN [Interacting]
     Active Substance: SOLIFENACIN
     Indication: Urinary tract infection
  6. SOLIFENACIN [Interacting]
     Active Substance: SOLIFENACIN
     Indication: Lower urinary tract symptoms
  7. OMEPRAZOLE [Interacting]
     Active Substance: OMEPRAZOLE
     Indication: Product used for unknown indication
     Dosage: 20 MG, QD(1-0-0)
     Route: 065
  8. DARIFENACIN [Interacting]
     Active Substance: DARIFENACIN
     Indication: Dysuria
     Dosage: 15 MG, QD (1-0-0)
     Route: 065
  9. DARIFENACIN [Interacting]
     Active Substance: DARIFENACIN
     Indication: Urinary retention
  10. DARIFENACIN [Interacting]
     Active Substance: DARIFENACIN
     Indication: Urinary tract infection
  11. DARIFENACIN [Interacting]
     Active Substance: DARIFENACIN
     Indication: Lower urinary tract symptoms
  12. DESMOPRESSIN [Interacting]
     Active Substance: DESMOPRESSIN
     Indication: Lower urinary tract symptoms
     Dosage: 60 UG, QD (0-0-0-1)/240 MICROGRAM DAILY
     Route: 065
  13. DOXAZOSIN [Interacting]
     Active Substance: DOXAZOSIN MESYLATE
     Indication: Hypertension
     Dosage: 4 MG, QD (0-0-1) IN THE EVENING
     Route: 048
  14. DOXAZOSIN [Interacting]
     Active Substance: DOXAZOSIN MESYLATE
     Indication: Lower urinary tract symptoms
  15. BISOPROLOL [Concomitant]
     Active Substance: BISOPROLOL
     Indication: Cardiac failure
     Dosage: 5 MG, QD (1-0-0) IN MORNING
     Route: 065
  16. SPIRONOLACTONE [Concomitant]
     Active Substance: SPIRONOLACTONE
     Indication: Cardiac failure
     Dosage: 25 MG, QD (1-0-0) (IN MORNING)
     Route: 048
  17. LERCANIDIPINE [Concomitant]
     Active Substance: LERCANIDIPINE
     Indication: Product used for unknown indication
     Dosage: 20 MG, QD (0-0-1) IN EVENING
     Route: 065
  18. ASPIRIN [Concomitant]
     Active Substance: ASPIRIN
     Indication: Ischaemic heart disease prophylaxis
     Dosage: 100 MG, THRICE DAILY (1-1-1) (NEWLY ABOUT 14 DAYS)
     Route: 065
  19. ASPIRIN [Concomitant]
     Active Substance: ASPIRIN
     Dosage: 100 MILLIGRAM DAILY; ACETYLSALICYLIC ACID 100 MG 1-0-0
     Route: 065
  20. PERINDOPRIL [Concomitant]
     Active Substance: PERINDOPRIL
     Indication: Cardiac failure
     Dosage: 4 MG, QD (1-0-0)
     Route: 065
  21. ATORVASTATIN [Concomitant]
     Active Substance: ATORVASTATIN
     Indication: Ischaemic heart disease prophylaxis
     Dosage: 15 MILLIGRAM DAILY; ATORVASTATIN-0-0-1
     Route: 065

REACTIONS (9)
  - Peripheral swelling [Recovered/Resolved]
  - Hyponatraemia [Recovered/Resolved]
  - Cognitive disorder [Unknown]
  - Concomitant disease aggravated [Unknown]
  - Duplicate therapy error [Unknown]
  - Drug interaction [Unknown]
  - Intentional product misuse [Unknown]
  - Condition aggravated [Unknown]
  - Product use in unapproved indication [Unknown]

NARRATIVE: CASE EVENT DATE: 20200806
